FAERS Safety Report 8421482-4 (Version None)
Quarter: 2012Q2

REPORT INFORMATION
  Report Type: 
  Country: None (occurrence: None)
  Receive Date: 20120608
  Receipt Date: 20120529
  Transmission Date: 20120825
  Serious: Yes (Hospitalization, Other)
  Sender: FDA-Public Use
  Company Number: CH-JNJFOC-20120510279

PATIENT
  Age: 75 Year
  Sex: Male
  Weight: 57 kg

DRUGS (2)
  1. REMICADE [Suspect]
     Indication: PYREXIA
     Dosage: 1 DOSAGE FORM ONCE
     Route: 042
     Dates: start: 20111002, end: 20111002
  2. PREDNISONE TAB [Suspect]
     Indication: PYREXIA
     Route: 048
     Dates: start: 20090901

REACTIONS (5)
  - ADRENAL INSUFFICIENCY [None]
  - MYOPATHY [None]
  - PNEUMONITIS [None]
  - LOWER RESPIRATORY TRACT INFECTION [None]
  - INFECTION [None]
